FAERS Safety Report 5997291-2 (Version None)
Quarter: 2008Q4

REPORT INFORMATION
  Report Type: 
  Country: None (occurrence: None)
  Receive Date: 20081212
  Receipt Date: 20081106
  Transmission Date: 20090506
  Serious: No
  Sender: FDA-Public Use
  Company Number: US-ABBOTT-08P-163-0486798-00

PATIENT
  Sex: Female

DRUGS (1)
  1. HUMIRA [Suspect]
     Indication: RHEUMATOID ARTHRITIS
     Route: 058

REACTIONS (10)
  - ARTHRALGIA [None]
  - CONDITION AGGRAVATED [None]
  - DRUG INEFFECTIVE [None]
  - PHOTOSENSITIVITY REACTION [None]
  - RASH [None]
  - RED BLOOD CELL SEDIMENTATION RATE DECREASED [None]
  - SCAR [None]
  - SKIN EXFOLIATION [None]
  - SKIN WARM [None]
  - SWELLING [None]
